FAERS Safety Report 19844683 (Version 1)
Quarter: 2021Q3

REPORT INFORMATION
  Report Type: Spontaneous
  Country: CN (occurrence: CN)
  Receive Date: 20210916
  Receipt Date: 20210916
  Transmission Date: 20211014
  Serious: Yes (Other)
  Sender: FDA-Public Use
  Company Number: CN-ALLERGAN-2131990US

PATIENT
  Sex: Male
  Weight: 38 kg

DRUGS (1)
  1. CEFTAZIDIME;AVIBACTAM ? BP [Suspect]
     Active Substance: AVIBACTAM SODIUM\CEFTAZIDIME
     Indication: PNEUMONIA
     Dosage: 2.5 G, 3X/DAY (Q8H)
     Route: 041
     Dates: start: 20210816, end: 20210816

REACTIONS (1)
  - Depressed level of consciousness [Recovering/Resolving]

NARRATIVE: CASE EVENT DATE: 20210823
